FAERS Safety Report 18110144 (Version 4)
Quarter: 2021Q2

REPORT INFORMATION
  Report Type: Spontaneous
  Country: US (occurrence: US)
  Receive Date: 20200804
  Receipt Date: 20210429
  Transmission Date: 20210717
  Serious: No
  Sender: FDA-Public Use
  Company Number: US-SA-2020SA201356

PATIENT
  Age: 31 Year
  Sex: Male
  Weight: 83.9 kg

DRUGS (10)
  1. NASOGEL [Concomitant]
  2. OMEPRAZOLE. [Concomitant]
     Active Substance: OMEPRAZOLE
     Dosage: UNK
  3. FABRAZYME [Suspect]
     Active Substance: AGALSIDASE BETA
     Dosage: 90 MG, QOW
     Route: 042
     Dates: start: 20191114
  4. EPINEPHRINE. [Concomitant]
     Active Substance: EPINEPHRINE
  5. FABRAZYME [Suspect]
     Active Substance: AGALSIDASE BETA
     Indication: FABRY^S DISEASE
     Dosage: 90 MG, QOW
     Route: 042
     Dates: start: 20190515
  6. LISINOPRIL. [Concomitant]
     Active Substance: LISINOPRIL
  7. STERILE WATER [Concomitant]
     Active Substance: WATER
  8. DIPHENHYDRAMINE. [Concomitant]
     Active Substance: DIPHENHYDRAMINE
  9. NORMAL SALINE [Concomitant]
     Active Substance: SODIUM CHLORIDE
  10. SODIUM CHLORIDE. [Concomitant]
     Active Substance: SODIUM CHLORIDE

REACTIONS (2)
  - Skin infection [Unknown]
  - Burning sensation [Unknown]
